FAERS Safety Report 10161374 (Version 4)
Quarter: 2014Q2

REPORT INFORMATION
  Report Type: Spontaneous
  Country: US (occurrence: US)
  Receive Date: 20140509
  Receipt Date: 20140612
  Transmission Date: 20141212
  Serious: Yes (Death, Hospitalization, Other)
  Sender: FDA-Public Use
  Company Number: 2014SP001756

PATIENT
  Age: 41 Year
  Sex: Male
  Weight: 179.3 kg

DRUGS (12)
  1. CYTARABINE [Suspect]
     Indication: ACUTE LYMPHOCYTIC LEUKAEMIA
     Route: 042
     Dates: start: 20140225, end: 20140302
  2. FLUDARABINE [Suspect]
     Indication: ACUTE LYMPHOCYTIC LEUKAEMIA
     Route: 042
     Dates: start: 20140226, end: 20140302
  3. FILGRASTIM [Suspect]
     Indication: ACUTE LYMPHOCYTIC LEUKAEMIA
     Route: 058
     Dates: start: 20140303, end: 20140303
  4. INSULIN GLARGINE [Concomitant]
     Dates: start: 20140227
  5. INSULIN LISPRO [Concomitant]
     Dates: start: 20140227
  6. LEVOTHYROXINE [Concomitant]
     Dates: start: 20130927
  7. QUETIAPINE [Concomitant]
     Dates: start: 20130926
  8. DIOVAN [Concomitant]
     Dates: start: 20130927
  9. VALACICLOVIR [Concomitant]
     Dates: start: 20130927
  10. VORICONAZOLE [Concomitant]
     Route: 042
     Dates: start: 20140228
  11. METOPROLOL [Concomitant]
     Dates: start: 20130927
  12. METFORMINE [Concomitant]
     Dates: start: 20130913

REACTIONS (7)
  - Disease progression [Fatal]
  - Acute lymphocytic leukaemia [Fatal]
  - Klebsiella infection [Not Recovered/Not Resolved]
  - Pyrexia [Not Recovered/Not Resolved]
  - Chills [Unknown]
  - Dyspnoea [Unknown]
  - Cough [Unknown]
